FAERS Safety Report 5897918-X (Version None)
Quarter: 2008Q3

REPORT INFORMATION
  Report Type: 
  Country: None (occurrence: None)
  Receive Date: 20080925
  Receipt Date: 20080912
  Transmission Date: 20090109
  Serious: Yes (Other)
  Sender: FDA-Public Use
  Company Number: GR-AMGEN-US308037

PATIENT
  Age: 70 Year
  Sex: Female

DRUGS (6)
  1. ENBREL [Suspect]
     Indication: RHEUMATOID ARTHRITIS
     Route: 058
     Dates: start: 20080401, end: 20080901
  2. ZYLORIC [Concomitant]
     Route: 065
  3. LIPITOR [Concomitant]
     Route: 065
  4. PREZOLON [Concomitant]
     Route: 065
  5. RIFINAH [Concomitant]
     Route: 065
  6. BESIX [Concomitant]
     Route: 065

REACTIONS (1)
  - APLASIA PURE RED CELL [None]
